FAERS Safety Report 18847374 (Version 1)
Quarter: 2021Q1

REPORT INFORMATION
  Report Type: Report from Study
  Country: US (occurrence: US)
  Receive Date: 20210203
  Receipt Date: 20210203
  Transmission Date: 20210419
  Serious: No
  Sender: FDA-Public Use
  Company Number: US-EXELIXIS-CABO-20032759

PATIENT
  Sex: Male

DRUGS (1)
  1. CABOMETYX [Suspect]
     Active Substance: CABOZANTINIB S-MALATE
     Indication: MALIGNANT NEOPLASM OF RENAL PELVIS
     Dosage: 40 MG, QD
     Dates: start: 20200817

REACTIONS (5)
  - Hepatic enzyme increased [Not Recovered/Not Resolved]
  - Dry skin [Not Recovered/Not Resolved]
  - Taste disorder [Not Recovered/Not Resolved]
  - Off label use [Unknown]
  - Oral pain [Not Recovered/Not Resolved]
